FAERS Safety Report 18685847 (Version 1)
Quarter: 2020Q4

REPORT INFORMATION
  Report Type: Spontaneous
  Country: FR (occurrence: FR)
  Receive Date: 20201230
  Receipt Date: 20201230
  Transmission Date: 20210114
  Serious: Yes (Life-Threatening, Hospitalization, Other)
  Sender: FDA-Public Use
  Company Number: FR-PURDUE-USA-2020-0194195

PATIENT
  Age: 73 Year
  Sex: Female

DRUGS (25)
  1. TEMESTA                            /00273201/ [Suspect]
     Active Substance: LORAZEPAM
     Indication: ANXIETY
     Dosage: 7.5 MG, DAILY
     Route: 065
  2. TRAMADOL. [Suspect]
     Active Substance: TRAMADOL
     Dosage: 50 MG, Q12H
     Route: 065
  3. LORMETAZEPAM [Suspect]
     Active Substance: LORMETAZEPAM
     Indication: PRODUCT USED FOR UNKNOWN INDICATION
     Dosage: 2 MG, NOCTE (IN THE EVENING)
     Route: 065
  4. VITAMINS NOS [Concomitant]
     Active Substance: VITAMINS
  5. THERALENE [Suspect]
     Active Substance: TRIMEPRAZINE
     Indication: ANXIETY
     Dosage: 25 GTT, DAILY IN THE EVENING 25 DRP
     Route: 065
     Dates: start: 202010, end: 202010
  6. METOCLOPRAMIDE. [Suspect]
     Active Substance: METOCLOPRAMIDE
     Indication: PRODUCT USED FOR UNKNOWN INDICATION
     Dosage: UNK
     Route: 065
  7. TEMESTA                            /00273201/ [Suspect]
     Active Substance: LORAZEPAM
     Dosage: 2.5 MG, (IN THE MORNING AND AT NOON IN ADDITION TO THE EVENING ; TIME INTERVAL)
     Route: 065
  8. ESOMEPRAZOLE. [Concomitant]
     Active Substance: ESOMEPRAZOLE MAGNESIUM
  9. SALBUTAMOL [Concomitant]
     Active Substance: ALBUTEROL
  10. DIAZEPAM. [Suspect]
     Active Substance: DIAZEPAM
     Indication: PRODUCT USED FOR UNKNOWN INDICATION
     Dosage: UNK
     Route: 065
  11. LAROXYL [Suspect]
     Active Substance: AMITRIPTYLINE HYDROCHLORIDE
     Indication: DEPRESSION
     Dosage: 5 GTT, BID, 10 DRP
     Route: 065
  12. LOPERAMIDE [Suspect]
     Active Substance: LOPERAMIDE
     Indication: PRODUCT USED FOR UNKNOWN INDICATION
     Dosage: UNK
     Route: 065
  13. MIANSERIN HYDROCHLORIDE [Suspect]
     Active Substance: MIANSERIN HYDROCHLORIDE
     Indication: PRODUCT USED FOR UNKNOWN INDICATION
     Dosage: UNK
     Route: 065
  14. CETIRIZINE DIHYDROCHLORIDE [Suspect]
     Active Substance: CETIRIZINE HYDROCHLORIDE
     Indication: PRODUCT USED FOR UNKNOWN INDICATION
     Dosage: UNK
     Route: 065
  15. AMPICILLIN [Suspect]
     Active Substance: AMPICILLIN
     Indication: PRODUCT USED FOR UNKNOWN INDICATION
     Dosage: UNK
     Route: 065
  16. DOLIPRANE [Suspect]
     Active Substance: ACETAMINOPHEN
     Indication: PRODUCT USED FOR UNKNOWN INDICATION
     Dosage: UNK
     Route: 065
  17. MORPHINE SULFATE (SIMILAR TO NDA 19-516) [Suspect]
     Active Substance: MORPHINE SULFATE
     Indication: PRODUCT USED FOR UNKNOWN INDICATION
     Dosage: UNK
     Route: 065
     Dates: start: 20201022, end: 20201022
  18. MIRTAZAPINE. [Suspect]
     Active Substance: MIRTAZAPINE
     Indication: DEPRESSION
     Dosage: 30 MG, EVERY ONE DAY; IN THE EVENING
     Route: 065
  19. LEXOMIL [Suspect]
     Active Substance: BROMAZEPAM
     Indication: ANXIETY
     Dosage: 0.5 UNIT, UNK (TIME INTERVAL)
     Route: 065
  20. LEXOMIL [Suspect]
     Active Substance: BROMAZEPAM
     Dosage: 1.5 UNIT, DAILY
     Route: 065
  21. LOSARTAN. [Concomitant]
     Active Substance: LOSARTAN
  22. LOVENOX [Concomitant]
     Active Substance: ENOXAPARIN SODIUM
     Dosage: 0.4 MG, DAILY
  23. NALOXONE HYDROCHLORIDE. [Suspect]
     Active Substance: NALOXONE HYDROCHLORIDE
     Indication: PRODUCT USED FOR UNKNOWN INDICATION
     Dosage: UNK
     Route: 065
  24. TRAMADOL. [Suspect]
     Active Substance: TRAMADOL
     Indication: PRODUCT USED FOR UNKNOWN INDICATION
     Dosage: 100 MG, DAILY
     Route: 065
  25. SPASFON                            /00765801/ [Concomitant]
     Active Substance: PHLOROGLUCINOL\1,3,5-TRIMETHOXYBENZENE

REACTIONS (9)
  - Appetite disorder [Unknown]
  - Thymus disorder [Unknown]
  - Generalised anxiety disorder [Unknown]
  - Sleep disorder [Unknown]
  - Renal failure [Unknown]
  - Tremor [Unknown]
  - Respiratory acidosis [Unknown]
  - Coma [Recovered/Resolved]
  - Bradypnoea [Recovered/Resolved]

NARRATIVE: CASE EVENT DATE: 20201022
